FAERS Safety Report 15376970 (Version 2)
Quarter: 2018Q3

REPORT INFORMATION
  Report Type: Report from Study
  Country: None (occurrence: SE)
  Receive Date: 20180913
  Receipt Date: 20180921
  Transmission Date: 20181010
  Serious: Yes (Death)
  Sender: FDA-Public Use
  Company Number: SE-ABBVIE-18S-150-2481296-00

PATIENT
  Age: 51 Year
  Sex: Female

DRUGS (4)
  1. CARBIDOPA ANHYDROUS AND LEVODOPA SINMET [Concomitant]
     Indication: PARKINSON^S DISEASE
     Dosage: AT NIGHT
     Route: 048
  2. DUODOPA [Suspect]
     Active Substance: CARBIDOPA\LEVODOPA
     Route: 050
     Dates: start: 20160112, end: 20180907
  3. NEUPRO DEPOT [Concomitant]
     Indication: PARKINSON^S DISEASE
     Dosage: AT NIGHT
  4. DUODOPA [Suspect]
     Active Substance: CARBIDOPA\LEVODOPA
     Indication: PARKINSON^S DISEASE
     Route: 050
     Dates: start: 20151116, end: 20160112

REACTIONS (7)
  - Respiratory tract haemorrhage [Fatal]
  - Multiple system atrophy [Fatal]
  - Fall [Not Recovered/Not Resolved]
  - Loss of consciousness [Fatal]
  - Parkinsonism [Fatal]
  - Pulmonary haemorrhage [Fatal]
  - Fall [Fatal]

NARRATIVE: CASE EVENT DATE: 2018
